FAERS Safety Report 17528497 (Version 1)
Quarter: 2020Q1

REPORT INFORMATION
  Report Type: Spontaneous
  Country: NL (occurrence: NL)
  Receive Date: 20200312
  Receipt Date: 20200312
  Transmission Date: 20200409
  Serious: Yes (Death, Other)
  Sender: FDA-Public Use
  Company Number: NL-AUROBINDO-AUR-APL-2020-012160

PATIENT
  Sex: Male
  Weight: 75 kg

DRUGS (1)
  1. SERTRALINE FILM-COATED TABLETS 50 MG [Suspect]
     Active Substance: SERTRALINE HYDROCHLORIDE
     Indication: OBSESSIVE-COMPULSIVE DISORDER
     Dosage: 1 DOSAGE FORM, ONCE A DAY,  1-1.5 TABLET
     Route: 065
     Dates: start: 201710

REACTIONS (4)
  - Libido decreased [Fatal]
  - Erectile dysfunction [Fatal]
  - Completed suicide [Fatal]
  - Emotional poverty [Fatal]
